FAERS Safety Report 7029527-3 (Version None)
Quarter: 2010Q4

REPORT INFORMATION
  Report Type: 
  Country: None (occurrence: None)
  Receive Date: 20101005
  Receipt Date: 20101005
  Transmission Date: 20110411
  Serious: Yes (Hospitalization, Other)
  Sender: FDA-Public Use
  Company Number: US-ABBOTT-10P-163-0671605-00

PATIENT
  Sex: Male

DRUGS (5)
  1. HUMIRA [Suspect]
     Indication: RHEUMATOID ARTHRITIS
     Dates: start: 20031101
  2. ATENOLOL [Concomitant]
     Indication: HYPERTENSION
  3. ASPIRIN [Concomitant]
     Indication: CARDIOVASCULAR EVENT PROPHYLAXIS
  4. PLAQUENIL [Concomitant]
     Indication: RHEUMATOID ARTHRITIS
  5. FOLIC ACID [Concomitant]
     Indication: VITAMIN SUPPLEMENTATION

REACTIONS (10)
  - ARTHRALGIA [None]
  - ARTHRITIS [None]
  - ARTHRITIS BACTERIAL [None]
  - BACTERIAL SEPSIS [None]
  - JOINT STIFFNESS [None]
  - JOINT SWELLING [None]
  - PYREXIA [None]
  - RHEUMATOID ARTHRITIS [None]
  - SKIN WARM [None]
  - STAPHYLOCOCCAL INFECTION [None]
